FAERS Safety Report 8065930-0 (Version None)
Quarter: 2012Q1

REPORT INFORMATION
  Report Type: 
  Country: None (occurrence: None)
  Receive Date: 20120124
  Receipt Date: 20120112
  Transmission Date: 20120608
  Serious: Yes (Other)
  Sender: FDA-Public Use
  Company Number: FR-PFIZER INC-2012010136

PATIENT
  Age: 74 Year
  Sex: Female
  Weight: 58 kg

DRUGS (5)
  1. TRANSIPEG [Concomitant]
     Indication: CONSTIPATION
     Dosage: UNK
     Route: 048
     Dates: start: 20111214
  2. EUPRESSYL [Concomitant]
     Indication: HYPERTENSION
     Dosage: UNK
     Dates: start: 20111115, end: 20111213
  3. CRIZOTINIB [Suspect]
     Indication: NON-SMALL CELL LUNG CANCER
     Dosage: 250 MG, UNK
     Route: 048
     Dates: start: 20111116, end: 20111215
  4. NICARDIPINE HCL [Concomitant]
     Indication: HYPERTENSION
     Dosage: UNK
     Dates: start: 20111115, end: 20111216
  5. XANAX [Concomitant]
     Indication: ANXIETY
     Dosage: UNK
     Dates: start: 20111214

REACTIONS (1)
  - FEMUR FRACTURE [None]
